FAERS Safety Report 16838542 (Version 1)
Quarter: 2019Q3

REPORT INFORMATION
  Report Type: Spontaneous
  Country: JP (occurrence: JP)
  Receive Date: 20190923
  Receipt Date: 20190923
  Transmission Date: 20191005
  Serious: Yes (Death, Hospitalization)
  Sender: FDA-Public Use
  Company Number: JP-ROCHE-2367693

PATIENT
  Age: 82 Year
  Sex: Male
  Weight: 40 kg

DRUGS (7)
  1. ETHAMBUTOL HYDROCHLORIDE. [Concomitant]
     Active Substance: ETHAMBUTOL HYDROCHLORIDE
     Dosage: DOSAGE IS UNCERTAIN.
     Route: 065
     Dates: start: 20190613, end: 20190717
  2. DECADRON [Concomitant]
     Active Substance: DEXAMETHASONE
     Dosage: DOSAGE IS UNCERTAIN.
     Route: 065
     Dates: start: 20190701, end: 20190702
  3. AVASTIN [Suspect]
     Active Substance: BEVACIZUMAB
     Indication: LUNG ADENOCARCINOMA
     Route: 041
     Dates: start: 20190620, end: 20190620
  4. CARBOPLATIN. [Concomitant]
     Active Substance: CARBOPLATIN
     Indication: LUNG ADENOCARCINOMA
     Route: 041
     Dates: start: 20190620, end: 20190620
  5. PACLITAXEL. [Concomitant]
     Active Substance: PACLITAXEL
     Indication: LUNG ADENOCARCINOMA
     Route: 041
     Dates: start: 20190620, end: 20190620
  6. TECENTRIQ [Suspect]
     Active Substance: ATEZOLIZUMAB
     Indication: LUNG ADENOCARCINOMA
     Route: 041
     Dates: start: 20190620, end: 20190620
  7. ISCOTIN [Concomitant]
     Active Substance: ISONIAZID
     Dosage: DOSAGE IS UNCERTAIN.
     Route: 065
     Dates: start: 20190613, end: 20190717

REACTIONS (2)
  - Diarrhoea [Recovering/Resolving]
  - Gastrointestinal perforation [Fatal]

NARRATIVE: CASE EVENT DATE: 20190629
